FAERS Safety Report 6545826-3 (Version None)
Quarter: 2010Q1

REPORT INFORMATION
  Report Type: 
  Country: None (occurrence: None)
  Receive Date: 20100121
  Receipt Date: 20100118
  Transmission Date: 20100710
  Serious: No
  Sender: FDA-Public Use
  Company Number: US-ELI_LILLY_AND_COMPANY-US200910004187

PATIENT
  Sex: Female

DRUGS (8)
  1. HUMATROPE [Suspect]
     Indication: PITUITARY TUMOUR
     Dosage: 0.3 MG, UNK
  2. HUMATROPE [Suspect]
     Dosage: 0.3 MG, UNK
  3. METFORMIN [Concomitant]
  4. COZAAR [Concomitant]
  5. ATENOLOL [Concomitant]
  6. FISH OIL [Concomitant]
  7. VITAMINS [Concomitant]
  8. VITAMIN D [Concomitant]

REACTIONS (2)
  - CATARACT [None]
  - DEVICE MISUSE [None]
